FAERS Safety Report 10334432 (Version 1)
Quarter: 2014Q3

REPORT INFORMATION
  Report Type: Spontaneous
  Country: US (occurrence: None)
  Receive Date: 20140721
  Receipt Date: 20140721
  Transmission Date: 20150326
  Serious: Yes (Other)
  Sender: FDA-Public Use
  Company Number: None

PATIENT
  Age: 50 Year
  Sex: Male
  Weight: 85.28 kg

DRUGS (1)
  1. ANDROGEL [Suspect]
     Active Substance: TESTOSTERONE
     Indication: BLOOD TESTOSTERONE DECREASED
     Route: 061
     Dates: start: 20140601, end: 20140618

REACTIONS (4)
  - Blood cholesterol decreased [None]
  - Product substitution issue [None]
  - Dizziness [None]
  - Weight decreased [None]

NARRATIVE: CASE EVENT DATE: 20140618
